FAERS Safety Report 24676386 (Version 1)
Quarter: 2024Q4

REPORT INFORMATION
  Report Type: Spontaneous
  Country: US (occurrence: US)
  Receive Date: 20241128
  Receipt Date: 20241128
  Transmission Date: 20250115
  Serious: No
  Sender: SANOFI AVENTIS
  Company Number: US-SA-2024SA345447

PATIENT
  Age: 59 Year
  Sex: Female
  Weight: 118.18 kg

DRUGS (1)
  1. DUPIXENT [Suspect]
     Active Substance: DUPILUMAB
     Indication: Asthma
     Dosage: 300 MG, QOW
     Route: 058
     Dates: start: 20240809

REACTIONS (2)
  - Wheezing [Unknown]
  - Sinusitis [Unknown]

NARRATIVE: CASE EVENT DATE: 20241101
